FAERS Safety Report 21969331 (Version 1)
Quarter: 2023Q1

REPORT INFORMATION
  Report Type: Report from Study
  Country: CN (occurrence: CN)
  Receive Date: 20230208
  Receipt Date: 20230208
  Transmission Date: 20230417
  Serious: Yes (Hospitalization)
  Sender: FDA-Public Use
  Company Number: CN-JNJFOC-20230161382

PATIENT
  Age: 63 Year
  Sex: Female
  Weight: 57 kg

DRUGS (6)
  1. TECLISTAMAB [Suspect]
     Active Substance: TECLISTAMAB
     Indication: Plasma cell myeloma refractory
     Route: 058
     Dates: start: 20220923, end: 20220926
  2. TECLISTAMAB [Suspect]
     Active Substance: TECLISTAMAB
     Route: 058
     Dates: start: 20220929, end: 20221208
  3. TECLISTAMAB [Suspect]
     Active Substance: TECLISTAMAB
     Dosage: C2D1
     Route: 058
     Dates: start: 20221025
  4. TECLISTAMAB [Suspect]
     Active Substance: TECLISTAMAB
     Route: 058
     Dates: start: 20221123
  5. DARATUMUMAB [Suspect]
     Active Substance: DARATUMUMAB
     Indication: Plasma cell myeloma refractory
     Route: 058
     Dates: start: 20220922, end: 20221208
  6. ACYCLOVIR [Concomitant]
     Active Substance: ACYCLOVIR
     Indication: Rash
     Route: 048
     Dates: start: 20221124, end: 20221223

REACTIONS (1)
  - COVID-19 [Not Recovered/Not Resolved]

NARRATIVE: CASE EVENT DATE: 20221229
